FAERS Safety Report 12894300 (Version 2)
Quarter: 2017Q4

REPORT INFORMATION
  Report Type: Spontaneous
  Country: US (occurrence: US)
  Receive Date: 20161028
  Receipt Date: 20171113
  Transmission Date: 20180320
  Serious: Yes (Hospitalization, Other)
  Sender: FDA-Public Use
  Company Number: US-009507513-1010USA01166

PATIENT
  Sex: Female
  Weight: 91.17 kg

DRUGS (6)
  1. FOSAMAX [Suspect]
     Active Substance: ALENDRONATE SODIUM
     Indication: OSTEOPENIA
     Dosage: UNK
     Route: 048
     Dates: start: 20011129
  2. FOSAMAX [Suspect]
     Active Substance: ALENDRONATE SODIUM
     Indication: OSTEOPOROSIS
  3. FOSAMAX [Suspect]
     Active Substance: ALENDRONATE SODIUM
     Indication: OSTEOPENIA
     Dosage: 70 MG, QW
     Route: 048
     Dates: start: 200310, end: 20091029
  4. ALENDRONATE SODIUM. [Suspect]
     Active Substance: ALENDRONATE SODIUM
     Indication: OSTEOPOROSIS
     Dosage: 70 MG, UNK
     Route: 048
     Dates: start: 20080415, end: 20090810
  5. FOSAMAX [Suspect]
     Active Substance: ALENDRONATE SODIUM
     Indication: OSTEOPOROSIS
  6. CORTICOSTEROIDS (UNSPECIFIED) [Concomitant]
     Active Substance: UNSPECIFIED INGREDIENT
     Indication: PRODUCT USED FOR UNKNOWN INDICATION
     Dosage: UNK
     Route: 065
     Dates: start: 1976, end: 2007

REACTIONS (26)
  - Complication associated with device [Unknown]
  - Arthropathy [Unknown]
  - Tendonitis [Unknown]
  - Non-cardiac chest pain [Unknown]
  - Fall [Unknown]
  - Gastrooesophageal reflux disease [Unknown]
  - Hyperlipidaemia [Unknown]
  - Cholecystectomy [Unknown]
  - Hypertension [Unknown]
  - Temporomandibular joint syndrome [Unknown]
  - Headache [Unknown]
  - Back pain [Unknown]
  - Nodule [Unknown]
  - Femur fracture [Unknown]
  - Bone density decreased [Unknown]
  - Reactive airways dysfunction syndrome [Unknown]
  - Bronchitis [Unknown]
  - Blood glucose abnormal [Unknown]
  - Periodontal disease [Unknown]
  - Skin lesion [Unknown]
  - Gastroenteritis [Unknown]
  - Herpes simplex [Unknown]
  - Arthralgia [Not Recovered/Not Resolved]
  - Chest pain [Unknown]
  - Seborrhoeic keratosis [Unknown]
  - Vaginal discharge [Unknown]

NARRATIVE: CASE EVENT DATE: 20040728
